FAERS Safety Report 23212477 (Version 1)
Quarter: 2023Q4

REPORT INFORMATION
  Report Type: Spontaneous
  Country: US (occurrence: None)
  Receive Date: 20231121
  Receipt Date: 20231121
  Transmission Date: 20240109
  Serious: No
  Sender: FDA-Public Use
  Company Number: None

PATIENT

DRUGS (1)
  1. CABOTEGRAVIR [Suspect]
     Active Substance: CABOTEGRAVIR

REACTIONS (5)
  - Arthralgia [None]
  - Joint swelling [None]
  - Dizziness [None]
  - Asthenia [None]
  - Pain [None]
